FAERS Safety Report 6493386-8 (Version None)
Quarter: 2009Q4

REPORT INFORMATION
  Report Type: 
  Country: None (occurrence: None)
  Receive Date: 20091214
  Receipt Date: 20091203
  Transmission Date: 20100525
  Serious: Yes (Hospitalization)
  Sender: FDA-Public Use
  Company Number: JP-BRISTOL-MYERS SQUIBB COMPANY-14887939

PATIENT
  Age: 64 Year
  Sex: Male

DRUGS (2)
  1. TAXOL [Suspect]
     Indication: LUNG ADENOCARCINOMA
     Route: 042
     Dates: start: 20090812
  2. PARAPLATIN [Suspect]
     Indication: LUNG ADENOCARCINOMA
     Dosage: 1 DF= AUC= 6
     Route: 042
     Dates: start: 20090812

REACTIONS (1)
  - INTERSTITIAL LUNG DISEASE [None]
